FAERS Safety Report 7314416 (Version 4)
Quarter: 2014Q1

REPORT INFORMATION
  Report Type: Spontaneous
  Country: US (occurrence: US)
  Receive Date: 20100311
  Receipt Date: 20140114
  Transmission Date: 20141002
  Serious: Yes (Death, Other)
  Sender: FDA-Public Use
  Company Number: US-BIOGENIDEC-2010BI007594

PATIENT
  Age: 76 Year
  Sex: Male

DRUGS (1)
  1. AVONEX [Suspect]
     Indication: MULTIPLE SCLEROSIS
     Route: 030
     Dates: start: 20020615

REACTIONS (3)
  - Death [Fatal]
  - Leg amputation [Unknown]
  - Multiple sclerosis [Unknown]
